FAERS Safety Report 9349808 (Version 1)
Quarter: 2013Q2

REPORT INFORMATION
  Report Type: Spontaneous
  Country: US (occurrence: US)
  Receive Date: 20130614
  Receipt Date: 20130614
  Transmission Date: 20140414
  Serious: No
  Sender: FDA-Public Use
  Company Number: US-009507513-1305USA017959

PATIENT
  Age: 27 Year
  Sex: Female

DRUGS (3)
  1. NASONEX [Suspect]
     Dosage: 50 MCG/ 2SPRAYS IN EACH NOSTRIL ONCE A DAY
     Route: 045
  2. SINGULAIR [Concomitant]
  3. ALBUTEROL SULFATE [Concomitant]

REACTIONS (2)
  - Nasal discomfort [Recovered/Resolved]
  - Epistaxis [Recovered/Resolved]
